FAERS Safety Report 20579070 (Version 5)
Quarter: 2022Q3

REPORT INFORMATION
  Report Type: Report from Study
  Country: US (occurrence: US)
  Receive Date: 20220310
  Receipt Date: 20220722
  Transmission Date: 20221027
  Serious: Yes (Hospitalization, Other)
  Sender: FDA-Public Use
  Company Number: US-JNJFOC-20211259487

PATIENT
  Age: 61 Year
  Sex: Female
  Weight: 47.4 kg

DRUGS (27)
  1. CILTACABTAGENE AUTOLEUCEL [Suspect]
     Active Substance: CILTACABTAGENE AUTOLEUCEL
     Indication: Plasma cell myeloma
     Route: 042
     Dates: start: 20211215, end: 20211215
  2. DARATUMUMAB [Suspect]
     Active Substance: DARATUMUMAB
     Indication: Plasma cell myeloma
     Dosage: 120 MG /ML   15 ML
     Route: 058
     Dates: start: 20210915, end: 20211012
  3. CYCLOPHOSPHAMIDE [Concomitant]
     Active Substance: CYCLOPHOSPHAMIDE
     Indication: Plasma cell myeloma
     Route: 042
     Dates: start: 20211210, end: 20211212
  4. FLUDARABINE [Concomitant]
     Active Substance: FLUDARABINE PHOSPHATE
     Indication: Plasma cell myeloma
     Route: 042
     Dates: start: 20211210, end: 20211212
  5. CHOLECALCIFEROL (VITD3) [Concomitant]
     Indication: Vitamin supplementation
     Dosage: 1000 UNITS NOT REPORTED
     Route: 048
     Dates: start: 20190101
  6. ACETAMINOPHEN\ASPIRIN\CAFFEINE\SALICYLAMIDE [Concomitant]
     Active Substance: ACETAMINOPHEN\ASPIRIN\CAFFEINE\SALICYLAMIDE
     Indication: Migraine
     Route: 048
     Dates: start: 20190101
  7. VITAMINS [Concomitant]
     Active Substance: VITAMINS
     Indication: Routine health maintenance
     Route: 048
     Dates: start: 20190314
  8. ACYCLOVIR [Concomitant]
     Active Substance: ACYCLOVIR
     Indication: Antiviral prophylaxis
     Route: 048
     Dates: start: 20201009
  9. ATOVAQUONE (MEPRON) [Concomitant]
     Indication: Antifungal prophylaxis
     Route: 048
     Dates: start: 20210624
  10. ASPIRIN [Concomitant]
     Active Substance: ASPIRIN
     Indication: Thrombosis prophylaxis
     Route: 048
     Dates: start: 20210913
  11. TRAMADOL [Concomitant]
     Active Substance: TRAMADOL
     Indication: Bone pain
     Route: 048
     Dates: start: 20210917
  12. ZOMETA [Concomitant]
     Active Substance: ZOLEDRONIC ACID
     Indication: Osteopenia
     Route: 042
     Dates: start: 20210928
  13. LIDOCAINE [Concomitant]
     Active Substance: LIDOCAINE
     Indication: Bone pain
     Route: 061
     Dates: start: 20210929
  14. OXYCODONE [Concomitant]
     Active Substance: OXYCODONE
     Indication: Bone pain
     Route: 048
     Dates: start: 20210930
  15. ALLOPURINOL [Concomitant]
     Active Substance: ALLOPURINOL
     Indication: Prophylaxis
     Route: 048
     Dates: start: 20211211, end: 20211230
  16. LEVETIRACETAM [Concomitant]
     Active Substance: LEVETIRACETAM
     Indication: Seizure prophylaxis
     Route: 048
     Dates: start: 20211215
  17. DIPHENHYDRAMINE [Concomitant]
     Active Substance: DIPHENHYDRAMINE
     Indication: Premedication
     Route: 042
     Dates: start: 20211215, end: 20211215
  18. POTASSIUM CHLORIDE [Concomitant]
     Active Substance: POTASSIUM CHLORIDE
     Indication: Prophylaxis
     Route: 042
     Dates: start: 20211215, end: 20211223
  19. ZOSYN [Concomitant]
     Active Substance: PIPERACILLIN SODIUM\TAZOBACTAM SODIUM
     Indication: Pyrexia
  20. ONDANSETRON [Concomitant]
     Active Substance: ONDANSETRON
     Indication: Nausea
     Route: 042
     Dates: start: 20211221, end: 20211221
  21. SODIUM CHLORIDE [Concomitant]
     Active Substance: SODIUM CHLORIDE
     Indication: Prophylaxis against dehydration
     Route: 042
     Dates: start: 20211222, end: 20211223
  22. SODIUM CHLORIDE [Concomitant]
     Active Substance: SODIUM CHLORIDE
     Indication: Hypotension
     Route: 042
     Dates: start: 20211223, end: 20211224
  23. SODIUM CHLORIDE [Concomitant]
     Active Substance: SODIUM CHLORIDE
     Route: 042
     Dates: start: 20211222, end: 20211222
  24. LOPERAMIDE [Concomitant]
     Active Substance: LOPERAMIDE
     Indication: Diarrhoea
     Route: 048
     Dates: start: 20211223, end: 20211225
  25. FLUCONAZOLE [Concomitant]
     Active Substance: FLUCONAZOLE
     Indication: Antifungal prophylaxis
     Route: 048
     Dates: start: 20211210, end: 20220104
  26. TOCILIZUMAB [Concomitant]
     Active Substance: TOCILIZUMAB
     Indication: Febrile neutropenia
     Route: 042
     Dates: start: 20211216
  27. ACETAMINOPHEN [Concomitant]
     Active Substance: ACETAMINOPHEN
     Indication: Pyrexia
     Route: 048
     Dates: start: 20211222, end: 20211223

REACTIONS (2)
  - Aspartate aminotransferase increased [Recovering/Resolving]
  - Cytokine release syndrome [Recovered/Resolved]

NARRATIVE: CASE EVENT DATE: 20211222
